FAERS Safety Report 6425726-X (Version None)
Quarter: 2009Q4

REPORT INFORMATION
  Report Type: 
  Country: None (occurrence: None)
  Receive Date: 20091103
  Receipt Date: 20091026
  Transmission Date: 20100525
  Serious: Yes (Hospitalization)
  Sender: FDA-Public Use
  Company Number: PHHO2009US13312

PATIENT
  Sex: Female

DRUGS (15)
  1. CERTICAN [Suspect]
     Indication: BREAST CANCER
     Dosage: 30 MG, UNK
     Dates: start: 20091009
  2. TAXOL [Suspect]
     Indication: BREAST CANCER
     Dosage: 80 MG, UNK
     Dates: start: 20091016
  3. FLUOROURACIL [Suspect]
     Indication: BREAST CANCER
     Dosage: 500 MG/M2, UNK
     Dates: start: 20091021
  4. EPIRUBICIN [Suspect]
     Indication: BREAST CANCER
     Dosage: 100 MG/M2, UNK
     Dates: start: 20091021
  5. CYCLOPHOSPHAMIDE [Suspect]
     Indication: BREAST CANCER
     Dosage: 500 MG/M2, UNK
     Dates: start: 20091021
  6. FLONASE [Concomitant]
  7. LEXAPRO [Concomitant]
  8. PULMICORT [Concomitant]
  9. WELLBUTRIN [Concomitant]
  10. ZYRTEC [Concomitant]
  11. DARVON [Concomitant]
  12. ZOFRAN [Concomitant]
  13. PREDNISOLONE [Concomitant]
  14. COMPAZINE [Concomitant]
  15. EMEND [Concomitant]

REACTIONS (3)
  - DYSPNOEA [None]
  - FATIGUE [None]
  - PULMONARY EMBOLISM [None]
